FAERS Safety Report 8066599-1 (Version None)
Quarter: 2012Q1

REPORT INFORMATION
  Report Type: 
  Country: None (occurrence: None)
  Receive Date: 20120124
  Receipt Date: 20120117
  Transmission Date: 20120608
  Serious: No
  Sender: FDA-Public Use
  Company Number: PHHY2011CA96115

PATIENT
  Sex: Female

DRUGS (1)
  1. GILENYA [Suspect]
     Indication: RELAPSING-REMITTING MULTIPLE SCLEROSIS
     Dosage: 0.5 MG, QD
     Route: 048
     Dates: start: 20111025

REACTIONS (10)
  - CHILLS [None]
  - POLLAKIURIA [None]
  - NAUSEA [None]
  - DECREASED APPETITE [None]
  - CONFUSIONAL STATE [None]
  - DIZZINESS [None]
  - ASTHENIA [None]
  - DYSURIA [None]
  - URINARY TRACT INFECTION [None]
  - DYSPNOEA [None]
